FAERS Safety Report 8054472-4 (Version None)
Quarter: 2012Q1

REPORT INFORMATION
  Report Type: 
  Country: None (occurrence: None)
  Receive Date: 20120118
  Receipt Date: 20120113
  Transmission Date: 20120608
  Serious: Yes (Hospitalization)
  Sender: FDA-Public Use
  Company Number: US-MERCK-1102USA02273

PATIENT
  Age: 46 Year
  Sex: Female
  Weight: 67 kg

DRUGS (4)
  1. FOSAMAX PLUS D [Suspect]
     Indication: OSTEOPOROSIS
     Route: 048
     Dates: start: 20081001, end: 20091001
  2. FOSAMAX [Suspect]
     Indication: OSTEOPOROSIS
     Route: 048
     Dates: start: 19960101, end: 20081029
  3. RECLAST [Concomitant]
     Indication: OSTEOPOROSIS
     Route: 065
     Dates: start: 20091201, end: 20101201
  4. ALENDRONATE SODIUM [Suspect]
     Indication: OSTEOPOROSIS
     Route: 048
     Dates: start: 20081030, end: 20091005

REACTIONS (15)
  - FALL [None]
  - RADIUS FRACTURE [None]
  - DEPRESSION [None]
  - MUSCULOSKELETAL DISORDER [None]
  - ARTHRALGIA [None]
  - HYPOTHYROIDISM [None]
  - FEMUR FRACTURE [None]
  - FIBROADENOMA OF BREAST [None]
  - PROCEDURAL HAEMORRHAGE [None]
  - SPIDER VEIN [None]
  - BASEDOW'S DISEASE [None]
  - BREAST CANCER IN SITU [None]
  - MENOPAUSAL SYMPTOMS [None]
  - TELANGIECTASIA [None]
  - ANTINUCLEAR ANTIBODY POSITIVE [None]
